FAERS Safety Report 15133016 (Version 2)
Quarter: 2018Q3

REPORT INFORMATION
  Report Type: Report from Study
  Country: IT (occurrence: IT)
  Receive Date: 20180712
  Receipt Date: 20180813
  Transmission Date: 20181010
  Serious: Yes (Hospitalization)
  Sender: FDA-Public Use
  Company Number: IT-CONCORDIA PHARMACEUTICALS INC.-E2B_00013379

PATIENT
  Age: 56 Year
  Sex: Female

DRUGS (2)
  1. COUMADIN [Suspect]
     Active Substance: WARFARIN SODIUM
     Route: 048
  2. DIGOXIN. [Suspect]
     Active Substance: DIGOXIN
     Route: 047

REACTIONS (4)
  - Renal failure [Recovering/Resolving]
  - International normalised ratio increased [Recovering/Resolving]
  - Drug level increased [Recovering/Resolving]
  - Asthenia [Recovering/Resolving]

NARRATIVE: CASE EVENT DATE: 20180530
